FAERS Safety Report 11213117 (Version 1)
Quarter: 2015Q2

REPORT INFORMATION
  Report Type: Spontaneous
  Country: US (occurrence: US)
  Receive Date: 20150623
  Receipt Date: 20150623
  Transmission Date: 20150821
  Serious: No
  Sender: FDA-Public Use
  Company Number: US-MEDA-2015050018

PATIENT
  Sex: Male

DRUGS (2)
  1. ASTELIN [Suspect]
     Active Substance: AZELASTINE HYDROCHLORIDE
     Indication: RHINITIS PERENNIAL
     Dates: start: 2005, end: 2013
  2. VALIUM [Concomitant]
     Active Substance: DIAZEPAM
     Indication: VERTIGO POSITIONAL

REACTIONS (2)
  - Dizziness [Unknown]
  - Off label use [Recovered/Resolved]

NARRATIVE: CASE EVENT DATE: 2005
